FAERS Safety Report 7268672-4 (Version None)
Quarter: 2011Q1

REPORT INFORMATION
  Report Type: 
  Country: None (occurrence: None)
  Receive Date: 20110201
  Receipt Date: 20110124
  Transmission Date: 20110831
  Serious: Yes (Other)
  Sender: FDA-Public Use
  Company Number: US-PURDUE-USA-2011-0062911

PATIENT
  Age: 57 Year
  Sex: Male

DRUGS (3)
  1. OXYCONTIN [Suspect]
     Indication: DRUG ABUSE
  2. ALCOHOL [Suspect]
     Indication: DRUG ABUSE
  3. AMBIEN [Suspect]
     Indication: DRUG ABUSE

REACTIONS (5)
  - SUBSTANCE ABUSE [None]
  - CONFUSIONAL STATE [None]
  - DRUG DEPENDENCE [None]
  - ALCOHOLISM [None]
  - SOMNOLENCE [None]
